FAERS Safety Report 25199789 (Version 2)
Quarter: 2025Q2

REPORT INFORMATION
  Report Type: Spontaneous
  Country: ES (occurrence: ES)
  Receive Date: 20250415
  Receipt Date: 20250626
  Transmission Date: 20250716
  Serious: Yes (Hospitalization, Other)
  Sender: MYLAN
  Company Number: None

PATIENT
  Age: 19 Year
  Sex: Female
  Weight: 60 kg

DRUGS (8)
  1. ACETAMINOPHEN [Interacting]
     Active Substance: ACETAMINOPHEN
     Indication: Product used for unknown indication
     Dates: start: 20241217, end: 20241217
  2. ACETAMINOPHEN [Interacting]
     Active Substance: ACETAMINOPHEN
     Route: 048
     Dates: start: 20241217, end: 20241217
  3. ACETAMINOPHEN [Interacting]
     Active Substance: ACETAMINOPHEN
     Route: 048
     Dates: start: 20241217, end: 20241217
  4. ACETAMINOPHEN [Interacting]
     Active Substance: ACETAMINOPHEN
     Dates: start: 20241217, end: 20241217
  5. SIMVASTATIN [Interacting]
     Active Substance: SIMVASTATIN
     Indication: Product used for unknown indication
     Dates: start: 20241217, end: 20241217
  6. SIMVASTATIN [Interacting]
     Active Substance: SIMVASTATIN
     Route: 048
     Dates: start: 20241217, end: 20241217
  7. SIMVASTATIN [Interacting]
     Active Substance: SIMVASTATIN
     Route: 048
     Dates: start: 20241217, end: 20241217
  8. SIMVASTATIN [Interacting]
     Active Substance: SIMVASTATIN
     Dates: start: 20241217, end: 20241217

REACTIONS (4)
  - Suicide attempt [Unknown]
  - Hypertransaminasaemia [Recovered/Resolved]
  - Intentional overdose [Recovered/Resolved]
  - Drug interaction [Unknown]

NARRATIVE: CASE EVENT DATE: 20241217
